FAERS Safety Report 7518305-4 (Version None)
Quarter: 2011Q2

REPORT INFORMATION
  Report Type: 
  Country: None (occurrence: None)
  Receive Date: 20110523
  Receipt Date: 20110510
  Transmission Date: 20111010
  Serious: Yes (Life-Threatening, Hospitalization)
  Sender: FDA-Public Use
  Company Number: 1000018883

PATIENT
  Age: 75 Year
  Sex: Female

DRUGS (6)
  1. NEURONTIN (GABAPENTIN) (CAPSULES) (GABAPENTIN) [Concomitant]
  2. BOI-K ASPARTICO (BOI-K ASPARTICO) (TABLETS) (BOI-K ASPARTICO) [Concomitant]
  3. CITALOPRAM HYDROBROMIDE [Suspect]
     Dosage: 20 MG (20 MG, 1 IN 1 D), ORAL
     Route: 048
  4. SEGURIL (FUROSEMIDE) (TABLETS) (FUROSEMIDE) [Concomitant]
  5. SINTROM [Suspect]
     Indication: ATRIAL FIBRILLATION
     Dosage: ORAL
     Route: 048
     Dates: end: 20091113
  6. ORFIDAL (LORAZEPAM) (LORAZEPAM) [Concomitant]

REACTIONS (6)
  - HAEMOGLOBIN DECREASED [None]
  - DRUG INTERACTION [None]
  - INTERNATIONAL NORMALISED RATIO INCREASED [None]
  - HAEMATOCRIT DECREASED [None]
  - BLOOD PRESSURE DECREASED [None]
  - MUSCLE HAEMORRHAGE [None]
